FAERS Safety Report 4699720-3 (Version None)
Quarter: 2005Q2

REPORT INFORMATION
  Report Type: 
  Country: None (occurrence: None)
  Receive Date: 20050623
  Receipt Date: 20050608
  Transmission Date: 20051028
  Serious: Yes (Hospitalization)
  Sender: FDA-Public Use
  Company Number: DSA_26621_2005

PATIENT
  Age: 67 Year
  Sex: Female

DRUGS (6)
  1. MASDIL [Suspect]
     Indication: ESSENTIAL HYPERTENSION
     Dosage: 300 MG Q DAY PO
     Route: 048
  2. ARTHROTEC [Suspect]
     Indication: ARTHROPATHY
     Dosage: 1 TAB Q DAY PO
     Route: 048
     Dates: start: 20050414, end: 20050418
  3. PAROXETINE HCL [Suspect]
     Indication: DEPRESSION
     Dosage: 40 MG Q DAY PO
     Route: 048
  4. OMEPRAZOLE [Concomitant]
  5. REPAGLINIDE [Concomitant]
  6. METFORMIN HCL [Concomitant]

REACTIONS (2)
  - HAEMATOCRIT DECREASED [None]
  - RECTAL HAEMORRHAGE [None]
